FAERS Safety Report 7164137-9 (Version None)
Quarter: 2010Q4

REPORT INFORMATION
  Report Type: 
  Country: None (occurrence: None)
  Receive Date: 20101123
  Receipt Date: 20100803
  Transmission Date: 20110411
  Serious: No
  Sender: FDA-Public Use
  Company Number: 015201

PATIENT
  Sex: Female
  Weight: 68 kg

DRUGS (3)
  1. CIMZIA [Suspect]
     Indication: CROHN'S DISEASE
     Dosage: (400 MG 1X/MONTH SUBCUTANEOUS)
     Route: 058
     Dates: start: 20100115
  2. SIMVASTATIN [Concomitant]
  3. LEVOTHYROXINE [Concomitant]

REACTIONS (5)
  - DYSKINESIA [None]
  - INJECTION SITE DISCOLOURATION [None]
  - INJECTION SITE RASH [None]
  - MEMORY IMPAIRMENT [None]
  - RASH [None]
